FAERS Safety Report 21741278 (Version 1)
Quarter: 2022Q4

REPORT INFORMATION
  Report Type: Spontaneous
  Country: BE (occurrence: BE)
  Receive Date: 20221216
  Receipt Date: 20221216
  Transmission Date: 20230112
  Serious: Yes (Other)
  Sender: FDA-Public Use
  Company Number: BE-PFIZER INC-PV202200121366

PATIENT
  Age: 16 Year
  Sex: Male

DRUGS (1)
  1. MEDROL [Suspect]
     Active Substance: METHYLPREDNISOLONE
     Indication: Papilloedema
     Dosage: UNK

REACTIONS (4)
  - Condition aggravated [Unknown]
  - Peripheral paralysis [Unknown]
  - Deafness unilateral [Unknown]
  - Acoustic neuroma [Unknown]

NARRATIVE: CASE EVENT DATE: 20180101
